FAERS Safety Report 5427548-5 (Version None)
Quarter: 2007Q3

REPORT INFORMATION
  Report Type: 
  Country: None (occurrence: None)
  Receive Date: 20070828
  Receipt Date: 20070820
  Transmission Date: 20080115
  Serious: Yes (Other)
  Sender: FDA-Public Use
  Company Number: A0652669A

PATIENT
  Age: 70 Year
  Sex: Male

DRUGS (2)
  1. VALTREX [Suspect]
     Dosage: 500MG THREE TIMES PER DAY
     Route: 048
     Dates: start: 20060501
  2. MULTI-VITAMIN [Concomitant]

REACTIONS (2)
  - BLINDNESS [None]
  - OVERDOSE [None]
